FAERS Safety Report 7710322-4 (Version None)
Quarter: 2011Q3

REPORT INFORMATION
  Report Type: 
  Country: None (occurrence: None)
  Receive Date: 20110825
  Receipt Date: 20110609
  Transmission Date: 20111222
  Serious: Yes (Other)
  Sender: FDA-Public Use
  Company Number: US-MYLANLABS-2011S1012095

PATIENT
  Sex: Female

DRUGS (8)
  1. FOSAMAX [Suspect]
     Indication: OSTEOPOROSIS PROPHYLAXIS
     Dates: start: 19970101
  2. FOSAMAX [Suspect]
     Indication: PROPHYLAXIS
     Dates: start: 19970101
  3. ALENDRONATE SODIUM [Suspect]
     Indication: OSTEOPOROSIS PROPHYLAXIS
     Dates: end: 20101001
  4. ALENDRONATE SODIUM [Suspect]
     Indication: OSTEOPOROSIS
     Dates: end: 20101001
  5. FOSAMAX [Suspect]
     Indication: OSTEOPOROSIS
     Dates: start: 19970101
  6. ALENDRONATE SODIUM [Suspect]
     Indication: OSTEOPENIA
     Dates: end: 20101001
  7. ALENDRONATE SODIUM [Suspect]
     Indication: PROPHYLAXIS
     Dates: end: 20101001
  8. FOSAMAX [Suspect]
     Indication: OSTEOPENIA
     Dates: start: 19970101

REACTIONS (1)
  - FEMUR FRACTURE [None]
